FAERS Safety Report 5740055-5 (Version None)
Quarter: 2008Q2

REPORT INFORMATION
  Report Type: 
  Country: None (occurrence: None)
  Receive Date: 20080516
  Receipt Date: 20080507
  Transmission Date: 20081010
  Serious: Yes (Other)
  Sender: FDA-Public Use
  Company Number: PHFR2008GB01377

PATIENT
  Age: 36 Year
  Sex: Male

DRUGS (2)
  1. CLOZARIL [Suspect]
     Indication: SCHIZOPHRENIA
     Route: 048
     Dates: start: 20031005, end: 20080501
  2. DEPIXOL [Concomitant]
     Route: 065

REACTIONS (3)
  - ANXIETY [None]
  - PANIC ATTACK [None]
  - TACHYCARDIA [None]
